FAERS Safety Report 6905458-1 (Version None)
Quarter: 2010Q3

REPORT INFORMATION
  Report Type: 
  Country: None (occurrence: None)
  Receive Date: 20100804
  Receipt Date: 20100722
  Transmission Date: 20110219
  Serious: Yes (Hospitalization, Other)
  Sender: FDA-Public Use
  Company Number: PHHY2010DE25862

PATIENT
  Sex: Female
  Weight: 68 kg

DRUGS (5)
  1. ALISKIREN ALI+ [Suspect]
     Indication: HYPERTENSION
     Dosage: 300 MG DAILY
     Route: 048
     Dates: start: 20081015
  2. LOCOL [Suspect]
     Indication: HYPERCHOLESTEROLAEMIA
     Dosage: 80 MG PER DAY
     Route: 048
  3. METOPROLOL ^STADA^ [Concomitant]
     Indication: HYPERTENSION
     Dosage: 100 MG/DAY
     Route: 048
  4. AMLODIPINE [Concomitant]
     Indication: HYPERTENSION
     Dosage: 5 MG/DAY
     Route: 048
  5. OMEPRAZOLE [Concomitant]
     Dosage: 40 MG/DAY
     Route: 048

REACTIONS (3)
  - CHEST DISCOMFORT [None]
  - CHEST PAIN [None]
  - DYSPNOEA EXERTIONAL [None]
